FAERS Safety Report 19698650 (Version 1)
Quarter: 2021Q3

REPORT INFORMATION
  Report Type: Spontaneous
  Country: GB (occurrence: GB)
  Receive Date: 20210813
  Receipt Date: 20210813
  Transmission Date: 20211014
  Serious: No
  Sender: FDA-Public Use
  Company Number: GB-ALKEM LABORATORIES LIMITED-GB-ALKEM-2021-02817

PATIENT

DRUGS (1)
  1. PREGABALIN. [Suspect]
     Active Substance: PREGABALIN
     Indication: PRODUCT USED FOR UNKNOWN INDICATION
     Dosage: 50 MILLIGRAM, BID
     Route: 048
     Dates: start: 20201102

REACTIONS (3)
  - Alopecia [Unknown]
  - Joint swelling [Unknown]
  - Weight increased [Unknown]

NARRATIVE: CASE EVENT DATE: 20210323
